FAERS Safety Report 5663918-8 (Version None)
Quarter: 2008Q1

REPORT INFORMATION
  Report Type: 
  Country: None (occurrence: None)
  Receive Date: 20080311
  Receipt Date: 20080304
  Transmission Date: 20080703
  Serious: Yes (Hospitalization)
  Sender: FDA-Public Use
  Company Number: L08-GER-00716-02

PATIENT
  Sex: Female
  Weight: 3.8 kg

DRUGS (2)
  1. PROSTAGLANDIN (PGE2) (PROSTAGLANDIN (PGE2)) [Suspect]
     Indication: LABOUR INDUCTION
     Dosage: 3 MG ONCE VG
     Route: 067
  2. OXYTOCIN [Concomitant]

REACTIONS (5)
  - CAESAREAN SECTION [None]
  - DRUG EXPOSURE DURING PREGNANCY [None]
  - FOETAL HEART RATE DECREASED [None]
  - HYPOTONIA NEONATAL [None]
  - NEONATAL ASPHYXIA [None]
